FAERS Safety Report 8541782-7 (Version None)
Quarter: 2012Q3

REPORT INFORMATION
  Report Type: 
  Country: None (occurrence: None)
  Receive Date: 20120726
  Receipt Date: 20120104
  Transmission Date: 20120928
  Serious: No
  Sender: FDA-Public Use
  Company Number: US-ASTRAZENECA-2011SE53679

PATIENT
  Age: 47 Year
  Sex: Male
  Weight: 72.6 kg

DRUGS (2)
  1. SEROQUEL XR [Suspect]
     Indication: ANXIETY
     Route: 048
     Dates: start: 20090101
  2. SEROQUEL XR [Suspect]
     Indication: SLEEP DISORDER
     Route: 048
     Dates: start: 20090101

REACTIONS (9)
  - PAIN IN EXTREMITY [None]
  - NECK PAIN [None]
  - INSOMNIA [None]
  - DRUG INEFFECTIVE [None]
  - DRUG DOSE OMISSION [None]
  - DISTURBANCE IN ATTENTION [None]
  - ANXIETY [None]
  - TOOTH LOSS [None]
  - OFF LABEL USE [None]
